FAERS Safety Report 18419695 (Version 2)
Quarter: 2020Q4

REPORT INFORMATION
  Report Type: Spontaneous
  Country: US (occurrence: US)
  Receive Date: 20201023
  Receipt Date: 20201028
  Transmission Date: 20210114
  Serious: Yes (Death)
  Sender: FDA-Public Use
  Company Number: US-PFIZER INC-2020406888

PATIENT
  Age: 20 Year
  Sex: Female

DRUGS (5)
  1. AMIKACIN. [Suspect]
     Active Substance: AMIKACIN
     Indication: BURSITIS
     Dosage: UNK
  2. CEFOXITIN [Suspect]
     Active Substance: CEFOXITIN SODIUM
     Indication: BURSITIS
     Dosage: UNK
  3. DOXYCYCLINE HYCLATE. [Suspect]
     Active Substance: DOXYCYCLINE HYCLATE
     Indication: BURSITIS
     Dosage: UNK
  4. ERYTHROMYCIN. [Suspect]
     Active Substance: ERYTHROMYCIN
     Indication: BURSITIS
     Dosage: UNK
  5. NORFLOXACIN [Suspect]
     Active Substance: NORFLOXACIN
     Indication: BURSITIS
     Dosage: UNK

REACTIONS (1)
  - Drug ineffective for unapproved indication [Fatal]
